FAERS Safety Report 15313860 (Version 4)
Quarter: 2018Q3

REPORT INFORMATION
  Report Type: Report from Study
  Country: DE (occurrence: DE)
  Receive Date: 20180824
  Receipt Date: 20180921
  Transmission Date: 20181010
  Serious: Yes (Hospitalization, Other)
  Sender: FDA-Public Use
  Company Number: DE-BRISTOL-MYERS SQUIBB COMPANY-BMS-2018-077914

PATIENT
  Age: 46 Year
  Sex: Female

DRUGS (17)
  1. NIVOLUMAB [Suspect]
     Active Substance: NIVOLUMAB
     Indication: PRODUCT USED FOR UNKNOWN INDICATION
     Dosage: 153 MG, Q2WK
     Route: 042
     Dates: start: 20180710
  2. IPILIMUMAB [Suspect]
     Active Substance: IPILIMUMAB
     Indication: MALIGNANT MELANOMA
     Dosage: 1 DF=150 (UNIT NOT SPECIFIED), Q3WK
     Route: 065
     Dates: start: 20180126, end: 20180626
  3. PANTOPRAZOLE SODIUM. [Concomitant]
     Active Substance: PANTOPRAZOLE SODIUM
     Indication: PRODUCT USED FOR UNKNOWN INDICATION
     Route: 065
  4. NIVOLUMAB [Suspect]
     Active Substance: NIVOLUMAB
     Indication: PRODUCT USED FOR UNKNOWN INDICATION
     Dosage: 150 MG, Q3WK
     Route: 042
     Dates: start: 20180522
  5. IPILIMUMAB [Suspect]
     Active Substance: IPILIMUMAB
     Indication: PRODUCT USED FOR UNKNOWN INDICATION
     Dosage: 156 MG, Q3WK
     Route: 065
     Dates: start: 20180605
  6. NIVOLUMAB [Suspect]
     Active Substance: NIVOLUMAB
     Indication: MALIGNANT MELANOMA
     Dosage: 153 MG, Q2WK
     Route: 042
     Dates: start: 20180126, end: 20180710
  7. NIVOLUMAB [Suspect]
     Active Substance: NIVOLUMAB
     Indication: PRODUCT USED FOR UNKNOWN INDICATION
     Dosage: 51 MG, Q3WK
     Route: 042
     Dates: start: 20180126, end: 20180227
  8. NIVOLUMAB [Suspect]
     Active Substance: NIVOLUMAB
     Indication: PRODUCT USED FOR UNKNOWN INDICATION
     Dosage: 52 MG, Q3WK
     Route: 042
     Dates: start: 20180605
  9. IPILIMUMAB [Suspect]
     Active Substance: IPILIMUMAB
     Indication: PRODUCT USED FOR UNKNOWN INDICATION
     Dosage: 153 MG, Q3WK
     Route: 042
     Dates: start: 20180126, end: 20180227
  10. LEVOTHYROXINE SODIUM. [Concomitant]
     Active Substance: LEVOTHYROXINE SODIUM
     Indication: PRODUCT USED FOR UNKNOWN INDICATION
     Route: 065
  11. PREDNISOLONE. [Concomitant]
     Active Substance: PREDNISOLONE
     Indication: PRODUCT USED FOR UNKNOWN INDICATION
     Dosage: 30 MG, DAILY DOSE
     Route: 048
     Dates: start: 20180402, end: 20180404
  12. PREDNISOLONE. [Concomitant]
     Active Substance: PREDNISOLONE
     Indication: PRODUCT USED FOR UNKNOWN INDICATION
     Dosage: 20 MG, DAILY DOSE
     Route: 048
     Dates: start: 20180405, end: 20180407
  13. NIVOLUMAB [Suspect]
     Active Substance: NIVOLUMAB
     Indication: PRODUCT USED FOR UNKNOWN INDICATION
     Dosage: 50 MG, Q2WK
     Route: 042
     Dates: start: 20180126, end: 20180626
  14. NIVOLUMAB [Suspect]
     Active Substance: NIVOLUMAB
     Indication: PRODUCT USED FOR UNKNOWN INDICATION
     Dosage: 153 MG, Q3WK
     Route: 042
     Dates: start: 20180410
  15. NIVOLUMAB [Suspect]
     Active Substance: NIVOLUMAB
     Indication: PRODUCT USED FOR UNKNOWN INDICATION
     Dosage: 145.5 MG, Q3WK
     Route: 042
     Dates: start: 20180424
  16. NIVOLUMAB [Suspect]
     Active Substance: NIVOLUMAB
     Indication: PRODUCT USED FOR UNKNOWN INDICATION
     Dosage: 150 MG, Q3WK
     Route: 042
     Dates: start: 20180508
  17. METHYLPREDNISOLONE. [Concomitant]
     Active Substance: METHYLPREDNISOLONE
     Indication: PRODUCT USED FOR UNKNOWN INDICATION
     Route: 065

REACTIONS (5)
  - Peritonitis [Unknown]
  - Diarrhoea [Recovered/Resolved]
  - Hypothyroidism [Not Recovered/Not Resolved]
  - Pyrexia [Recovered/Resolved]
  - Autoimmune colitis [Recovered/Resolved]

NARRATIVE: CASE EVENT DATE: 20180217
